FAERS Safety Report 5890901-X (Version None)
Quarter: 2008Q3

REPORT INFORMATION
  Report Type: 
  Country: None (occurrence: None)
  Receive Date: 20080918
  Receipt Date: 20080918
  Transmission Date: 20090109
  Serious: Yes (Other)
  Sender: FDA-Public Use
  Company Number: None

PATIENT
  Age: 36 Year
  Sex: Male
  Weight: 74.8435 kg

DRUGS (6)
  1. AVELOX [Suspect]
     Indication: SINUSITIS
     Dosage: 400 MG 1 DAILY PO
     Route: 048
     Dates: start: 20080805, end: 20080812
  2. AVELOX [Suspect]
     Indication: STREPTOCOCCAL INFECTION
     Dosage: 400 MG 1 DAILY PO
     Route: 048
     Dates: start: 20080805, end: 20080812
  3. AVELOX [Suspect]
     Indication: SINUSITIS
     Dosage: 400 MG 1 DAILY PO
     Route: 048
     Dates: start: 20080910, end: 20080916
  4. AVELOX [Suspect]
     Indication: STREPTOCOCCAL INFECTION
     Dosage: 400 MG 1 DAILY PO
     Route: 048
     Dates: start: 20080910, end: 20080916
  5. MUCINEX [Concomitant]
     Indication: UPPER RESPIRATORY TRACT INFECTION
  6. ... [Concomitant]

REACTIONS (13)
  - APHTHOUS STOMATITIS [None]
  - FEELING ABNORMAL [None]
  - GINGIVAL SWELLING [None]
  - LIVER FUNCTION TEST ABNORMAL [None]
  - LYMPHADENOPATHY [None]
  - MALAISE [None]
  - ORAL DISORDER [None]
  - PHARYNGEAL OEDEMA [None]
  - POSTNASAL DRIP [None]
  - PURULENT DISCHARGE [None]
  - PYREXIA [None]
  - SWOLLEN TONGUE [None]
  - WEIGHT DECREASED [None]
